FAERS Safety Report 6983258-4 (Version None)
Quarter: 2010Q3

REPORT INFORMATION
  Report Type: 
  Country: None (occurrence: None)
  Receive Date: 20100914
  Receipt Date: 20100728
  Transmission Date: 20110219
  Serious: No
  Sender: FDA-Public Use
  Company Number: US-PFIZER INC-2010095556

PATIENT
  Sex: Female
  Weight: 61 kg

DRUGS (3)
  1. LYRICA [Suspect]
     Indication: NEUROPATHY PERIPHERAL
     Dosage: 175 MG, 3X/DAY
     Route: 048
     Dates: start: 20100727
  2. COZAAR [Concomitant]
     Indication: BLOOD PRESSURE INCREASED
     Dosage: UNK
  3. OMEPRAZOLE [Concomitant]
     Indication: DIVERTICULUM
     Dosage: UNK

REACTIONS (4)
  - BALANCE DISORDER [None]
  - DIZZINESS [None]
  - HEADACHE [None]
  - MUSCLE SPASMS [None]
